FAERS Safety Report 6602146-6 (Version None)
Quarter: 2010Q1

REPORT INFORMATION
  Report Type: 
  Country: None (occurrence: None)
  Receive Date: 20100225
  Receipt Date: 20100222
  Transmission Date: 20100710
  Serious: Yes (Death, Hospitalization, Other)
  Sender: FDA-Public Use
  Company Number: PHEH2006US03508

PATIENT
  Sex: Female
  Weight: 43.083 kg

DRUGS (21)
  1. AREDIA [Suspect]
     Dosage: UNK,UNK
     Dates: start: 20030101
  2. ZOMETA [Suspect]
     Dosage: 4 MG, QMO
     Route: 042
     Dates: start: 20030925, end: 20050427
  3. ARIMIDEX [Concomitant]
     Indication: BREAST CANCER
     Dosage: 1 MG, QD
     Route: 048
     Dates: start: 20030711
  4. DIGOXIN [Concomitant]
     Dosage: 0.125 MG, QD
     Route: 048
  5. SPIRONOLACTONE [Concomitant]
     Dosage: 50 MG, QD
     Route: 048
  6. ALLEGRA [Concomitant]
     Dosage: 60 MG, PRN
     Route: 048
  7. ZANTAC [Concomitant]
     Dosage: 75 MG, QD
     Route: 048
  8. TYLENOL-500 [Concomitant]
     Dosage: 500 MG, PRN EVERY 4-6 HOURS
  9. TYLENOL-500 [Concomitant]
     Dosage: 500 MG, PRN EVERY 4-6 HOURS
  10. TAXOTERE [Concomitant]
     Indication: BREAST CANCER
     Dosage: UNK, UNK
  11. ALDACTONE [Concomitant]
     Dosage: 50 MG, QD
  12. LORAZEPAM [Concomitant]
  13. PROCHLORPERAZINE [Concomitant]
  14. DEXAMETHASONE [Concomitant]
  15. ROXANOL [Concomitant]
  16. RADIATION [Concomitant]
     Indication: METASTASES TO BONE
     Dosage: 250 CGY/DAY FRACTIONS
     Dates: start: 20030909, end: 20031002
  17. EVISTA [Concomitant]
  18. FLAGYL [Concomitant]
     Dosage: UNK
     Route: 048
  19. AROMASIN [Concomitant]
     Dosage: UNK
     Route: 048
  20. BACTRIM [Concomitant]
     Dosage: 80 MG, QD
  21. NEUPOGEN [Concomitant]
     Dosage: 400MCG
     Route: 058

REACTIONS (61)
  - ANXIETY [None]
  - ARTHRALGIA [None]
  - ASCITES [None]
  - BACK PAIN [None]
  - BONE DISORDER [None]
  - BONE PAIN [None]
  - CONTUSION [None]
  - CYSTITIS [None]
  - DEHYDRATION [None]
  - DENTAL PULP DISORDER [None]
  - DIARRHOEA [None]
  - DIZZINESS [None]
  - EATING DISORDER [None]
  - EMOTIONAL DISTRESS [None]
  - ENDODONTIC PROCEDURE [None]
  - FAILURE TO THRIVE [None]
  - FALL [None]
  - FATIGUE [None]
  - GASTROINTESTINAL DISORDER [None]
  - HAEMATURIA [None]
  - HAEMORRHAGE [None]
  - HEPATIC CIRRHOSIS [None]
  - HYDRONEPHROSIS [None]
  - HYPOAESTHESIA [None]
  - HYPOPHAGIA [None]
  - IMPAIRED HEALING [None]
  - INFECTION [None]
  - INFLUENZA LIKE ILLNESS [None]
  - LIMB DISCOMFORT [None]
  - MALAISE [None]
  - MASS [None]
  - NAUSEA [None]
  - NECK PAIN [None]
  - NIGHT SWEATS [None]
  - OPEN WOUND [None]
  - ORAL PAIN [None]
  - ORAL TORUS [None]
  - OSTEITIS [None]
  - OSTEOMYELITIS [None]
  - OSTEONECROSIS [None]
  - OVERDOSE [None]
  - PAIN [None]
  - PAIN IN EXTREMITY [None]
  - PARACENTESIS [None]
  - PARAESTHESIA [None]
  - PHYSICAL DISABILITY [None]
  - PLATELET COUNT DECREASED [None]
  - PRIMARY SEQUESTRUM [None]
  - PYREXIA [None]
  - RASH [None]
  - REFLUX OESOPHAGITIS [None]
  - SPLENOMEGALY [None]
  - STENT PLACEMENT [None]
  - STOMATITIS [None]
  - THERAPEUTIC PROCEDURE [None]
  - TOOTH EXTRACTION [None]
  - TRANSITIONAL CELL CARCINOMA [None]
  - URETERIC OBSTRUCTION [None]
  - URINARY TRACT INFECTION [None]
  - VOMITING [None]
  - WOUND DRAINAGE [None]
